APPROVED DRUG PRODUCT: TELMISARTAN AND HYDROCHLOROTHIAZIDE
Active Ingredient: HYDROCHLOROTHIAZIDE; TELMISARTAN
Strength: 12.5MG;40MG
Dosage Form/Route: TABLET;ORAL
Application: A091648 | Product #001
Applicant: NATCO PHARMA LTD
Approved: Feb 25, 2014 | RLD: No | RS: No | Type: DISCN